FAERS Safety Report 14245310 (Version 1)
Quarter: 2017Q4

REPORT INFORMATION
  Report Type: Spontaneous
  Country: US (occurrence: US)
  Receive Date: 20171202
  Receipt Date: 20171202
  Transmission Date: 20180321
  Serious: No
  Sender: FDA-Public Use
  Company Number: US-ENDO PHARMACEUTICALS INC-2017-002834

PATIENT
  Sex: Male
  Weight: 85.26 kg

DRUGS (6)
  1. XIAFLEX [Suspect]
     Active Substance: COLLAGENASE CLOSTRIDIUM HISTOLYTICUM
     Dosage: UNK UNK, UNKNOWN (SECOND INJECTION OF SECOND CYCLE)
     Route: 065
     Dates: start: 20151218
  2. XIAFLEX [Suspect]
     Active Substance: COLLAGENASE CLOSTRIDIUM HISTOLYTICUM
     Dosage: UNK UNK, UNKNOWN (FIRST INJECTION OF SECOND CYCLE)
     Route: 065
     Dates: start: 20151214
  3. XIAFLEX [Suspect]
     Active Substance: COLLAGENASE CLOSTRIDIUM HISTOLYTICUM
     Dosage: UNK UNK, UNKNOWN (FIRST INJECTION OF THIRD CYCLE)
     Route: 065
     Dates: start: 20160222
  4. XIAFLEX [Suspect]
     Active Substance: COLLAGENASE CLOSTRIDIUM HISTOLYTICUM
     Dosage: UNK UNK, UNKNOWN (SECOND INJECTION OF THIRD CYCLE)
     Route: 065
     Dates: start: 20160224, end: 20160224
  5. XIAFLEX [Suspect]
     Active Substance: COLLAGENASE CLOSTRIDIUM HISTOLYTICUM
     Dosage: UNK UNK, UNKNOWN (SECOND INJECTION OF FIRST CYCLE)
     Route: 065
     Dates: start: 20151030
  6. XIAFLEX [Suspect]
     Active Substance: COLLAGENASE CLOSTRIDIUM HISTOLYTICUM
     Indication: PEYRONIE^S DISEASE
     Dosage: UNK UNK, UNKNOWN (FIRST INJECTION OF FIRST CYCLE)
     Route: 065
     Dates: start: 20151028

REACTIONS (2)
  - Erectile dysfunction [Unknown]
  - Incorrect drug administration duration [Unknown]
